FAERS Safety Report 4475651-9 (Version None)
Quarter: 2004Q3

REPORT INFORMATION
  Report Type: 
  Country: None (occurrence: None)
  Receive Date: 20040923
  Receipt Date: 20040714
  Transmission Date: 20050211
  Serious: No
  Sender: FDA-Public Use
  Company Number: USA040772678

PATIENT
  Age: 82 Year
  Sex: Female
  Weight: 66 kg

DRUGS (7)
  1. FORTEO [Suspect]
     Indication: BONE DISORDER
     Dates: start: 20040702
  2. CORTISONE [Concomitant]
  3. NIZATIDINE [Concomitant]
  4. ULTRACET [Concomitant]
  5. CITRUCEL (METHYLCELLULOSE) [Concomitant]
  6. TOPROL-XL [Concomitant]
  7. ASPIRIN [Concomitant]

REACTIONS (5)
  - ASTHENIA [None]
  - DEPRESSION [None]
  - DIZZINESS [None]
  - MUSCLE CRAMP [None]
  - STOMACH DISCOMFORT [None]
